FAERS Safety Report 9613591 (Version 1)
Quarter: 2013Q4

REPORT INFORMATION
  Report Type: Spontaneous
  Country: US (occurrence: US)
  Receive Date: 20131010
  Receipt Date: 20131010
  Transmission Date: 20140711
  Serious: Yes (Other)
  Sender: FDA-Public Use
  Company Number: US-PFIZER INC-2013288595

PATIENT
  Age: 48 Year
  Sex: Female
  Weight: 52.15 kg

DRUGS (2)
  1. SERTRALINE HCL [Suspect]
     Indication: ANXIETY
     Dosage: 25 MG, 1X/DAY
     Route: 048
     Dates: start: 20130809, end: 20130822
  2. SERTRALINE HCL [Suspect]
     Indication: DEPRESSION

REACTIONS (4)
  - Tardive dyskinesia [Unknown]
  - Muscular weakness [Unknown]
  - Facial paresis [Unknown]
  - Impaired work ability [Unknown]
